FAERS Safety Report 9123721 (Version 1)
Quarter: 2013Q1

REPORT INFORMATION
  Report Type: Spontaneous
  Country: FR (occurrence: FR)
  Receive Date: 20130115
  Receipt Date: 20130115
  Transmission Date: 20140127
  Serious: Yes (Hospitalization)
  Sender: FDA-Public Use
  Company Number: FR-PFIZER INC-2013008318

PATIENT
  Age: 65 Year
  Sex: Male

DRUGS (1)
  1. VFEND [Suspect]
     Indication: BRONCHOPULMONARY ASPERGILLOSIS ALLERGIC
     Dosage: UNK
     Route: 048
     Dates: start: 20080529, end: 200807

REACTIONS (5)
  - Porphyria non-acute [Recovered/Resolved with Sequelae]
  - Skin fragility [Not Recovered/Not Resolved]
  - Drug eruption [Recovered/Resolved]
  - Dermatitis bullous [Recovered/Resolved]
  - Cheilitis [Unknown]
